FAERS Safety Report 4961220-0 (Version None)
Quarter: 2006Q1

REPORT INFORMATION
  Report Type: 
  Country: None (occurrence: None)
  Receive Date: 20060201
  Receipt Date: 20051020
  Transmission Date: 20060701
  Serious: No
  Sender: FDA-Public Use
  Company Number: 2005PV003695

PATIENT
  Age: 59 Year
  Sex: Female
  Weight: 91.1276 kg

DRUGS (11)
  1. BYETTA [Suspect]
     Indication: DIABETES MELLITUS NON-INSULIN-DEPENDENT
     Dosage: 5 MCG; BID; SC
     Route: 058
     Dates: start: 20050928
  2. GLUCOVANCE [Concomitant]
  3. ACTOS [Concomitant]
  4. LEXAPRO [Concomitant]
  5. ACTONEL [Concomitant]
  6. NEXIUM [Concomitant]
  7. ASPIRIN [Concomitant]
  8. TEVETEN [Concomitant]
  9. VITAMINS [Concomitant]
  10. SYNTHROID [Concomitant]
  11. LIPITOR [Concomitant]

REACTIONS (1)
  - WEIGHT INCREASED [None]
